FAERS Safety Report 5154829-5 (Version None)
Quarter: 2006Q4

REPORT INFORMATION
  Report Type: 
  Country: None (occurrence: None)
  Receive Date: 20061121
  Receipt Date: 20061115
  Transmission Date: 20070319
  Serious: Yes (Other)
  Sender: FDA-Public Use
  Company Number: US-JNJFOC-20060900909

PATIENT
  Sex: Female
  Weight: 74.84 kg

DRUGS (4)
  1. TRAMADOL HCL [Suspect]
     Indication: BACK PAIN
     Route: 048
  2. NORVASC [Concomitant]
  3. ATIVAN [Concomitant]
  4. ZETIA [Concomitant]

REACTIONS (8)
  - ABNORMAL DREAMS [None]
  - ASTHENIA [None]
  - CONFUSIONAL STATE [None]
  - CONVULSION [None]
  - DYSARTHRIA [None]
  - HALLUCINATION [None]
  - PHOTOPSIA [None]
  - SUPRAVENTRICULAR TACHYCARDIA [None]
